FAERS Safety Report 7596183-5 (Version None)
Quarter: 2011Q3

REPORT INFORMATION
  Report Type: 
  Country: None (occurrence: None)
  Receive Date: 20110707
  Receipt Date: 20110630
  Transmission Date: 20111222
  Serious: Yes (Hospitalization)
  Sender: FDA-Public Use
  Company Number: US-ALEXION PHARMACEUTICALS INC.-A201100671

PATIENT
  Sex: Female

DRUGS (7)
  1. SOLIRIS [Suspect]
     Indication: PAROXYSMAL NOCTURNAL HAEMOGLOBINURIA
     Dosage: 600 MG, QW
     Route: 042
     Dates: start: 20080917, end: 20081001
  2. VICODIN [Concomitant]
     Indication: HEADACHE
     Dosage: UNK, PRN
  3. SOLIRIS [Suspect]
     Dosage: 900 MG, Q2W
     Route: 042
     Dates: start: 20081022, end: 20110511
  4. PRILOSEC [Concomitant]
     Dosage: 20 MG, QD
  5. COUMADIN [Concomitant]
  6. TYLENOL-500 [Concomitant]
     Dosage: UNK, PRN
  7. MAXALT [Concomitant]
     Indication: HEADACHE
     Dosage: UNK, PRN

REACTIONS (7)
  - DEHYDRATION [None]
  - BONE MARROW TRANSPLANT [None]
  - HEADACHE [None]
  - HAEMOLYSIS [None]
  - PANCYTOPENIA [None]
  - ABDOMINAL PAIN [None]
  - GASTROENTERITIS VIRAL [None]
